FAERS Safety Report 7125912-X (Version None)
Quarter: 2010Q4

REPORT INFORMATION
  Report Type: 
  Country: None (occurrence: None)
  Receive Date: 20101129
  Receipt Date: 20101119
  Transmission Date: 20110411
  Serious: No
  Sender: FDA-Public Use
  Company Number: KR-JNJFOC-20101107574

PATIENT
  Sex: Female

DRUGS (1)
  1. DURAGESIC-100 [Suspect]
     Indication: PAIN MANAGEMENT
     Dosage: HALF OF 12.5 UG/HR
     Route: 062

REACTIONS (4)
  - DREAMY STATE [None]
  - DRUG ADMINISTRATION ERROR [None]
  - HEADACHE [None]
  - VOMITING [None]
